FAERS Safety Report 6809799-8 (Version None)
Quarter: 2010Q2

REPORT INFORMATION
  Report Type: 
  Country: None (occurrence: None)
  Receive Date: 20100630
  Receipt Date: 20100618
  Transmission Date: 20101027
  Serious: Yes (Other)
  Sender: FDA-Public Use
  Company Number: US-WATSON-2009-10882

PATIENT
  Sex: Male

DRUGS (5)
  1. FENTANYL-75 [Suspect]
     Indication: BACK PAIN
     Dosage: 275 MCG TOTAL Q 3 DAYS
     Route: 062
     Dates: start: 20090901
  2. FENTANYL-75 [Suspect]
     Indication: CONGENITAL CYSTIC KIDNEY DISEASE
     Dosage: 275 MCG TOTAL Q 3 DAYS
     Route: 062
     Dates: start: 20090901
  3. FENTANYL-100 [Suspect]
     Indication: BACK PAIN
     Dosage: 275 MCG TOTAL Q 3 DAYS
     Route: 062
     Dates: start: 20090901
  4. FENTANYL-100 [Suspect]
     Indication: CONGENITAL CYSTIC KIDNEY DISEASE
     Dosage: 275 MCG TOTAL Q 3 DAYS
     Route: 062
     Dates: start: 20090901
  5. FENTANYL-25 [Suspect]
     Indication: DRUG USE FOR UNKNOWN INDICATION
     Dosage: UNK
     Route: 062

REACTIONS (5)
  - APPLICATION SITE INFECTION [None]
  - APPLICATION SITE ULCER [None]
  - DRUG INEFFECTIVE [None]
  - RENAL FAILURE [None]
  - WRONG TECHNIQUE IN DRUG USAGE PROCESS [None]
